FAERS Safety Report 6028269-0 (Version None)
Quarter: 2008Q4

REPORT INFORMATION
  Report Type: 
  Country: None (occurrence: None)
  Receive Date: 20081231
  Receipt Date: 20081231
  Transmission Date: 20090506
  Serious: Yes (Other)
  Sender: FDA-Public Use
  Company Number: None

PATIENT
  Age: 9 Year
  Sex: Female
  Weight: 30.8 kg

DRUGS (1)
  1. TRIAMINIC COLD AND NIGHT TIME COUGH GRAPE (NCH)(CHLORPHENIRAMINE MALEA [Suspect]
     Indication: NASOPHARYNGITIS
     Dosage: 2 TSP, ONCE/SINGLE, ORAL
     Route: 048
     Dates: start: 20081206, end: 20081206

REACTIONS (1)
  - CONVULSION [None]
